FAERS Safety Report 5418161-4 (Version None)
Quarter: 2007Q3

REPORT INFORMATION
  Report Type: 
  Country: None (occurrence: None)
  Receive Date: 20070817
  Receipt Date: 20070808
  Transmission Date: 20080115
  Serious: Yes (Hospitalization, Other)
  Sender: FDA-Public Use
  Company Number: US-ELI_LILLY_AND_COMPANY-US200708001935

PATIENT
  Age: 53 Year
  Sex: Female
  Weight: 134.69 kg

DRUGS (11)
  1. BYETTA [Suspect]
     Indication: TYPE 2 DIABETES MELLITUS
     Dosage: 10 UG, 2/D
     Route: 058
     Dates: start: 20060101, end: 20060101
  2. BYETTA [Suspect]
     Dosage: 10 UG, 2/D
     Route: 058
     Dates: start: 20060101
  3. METFORMIN HCL [Concomitant]
     Indication: DIABETES MELLITUS
     Dosage: 500 MG, 2/D
     Route: 048
  4. DIOVAN /SCH/ [Concomitant]
     Indication: HYPERTENSION
     Dosage: 320 MG, DAILY (1/D)
     Route: 048
  5. PLAVIX [Concomitant]
     Indication: ANTICOAGULANT THERAPY
     Dosage: 75 MG, DAILY (1/D)
     Route: 048
  6. ISOSORBIDE MONONITRATE [Concomitant]
     Indication: CARDIAC DISORDER
     Dosage: 120 MG, DAILY (1/D)
     Route: 048
  7. CADUET [Concomitant]
     Indication: BLOOD CHOLESTEROL
     Dosage: UNK D/F, DAILY (1/D)
     Route: 048
  8. ASPIRIN [Concomitant]
     Dosage: 325 MG, DAILY (1/D)
     Route: 048
  9. ALBUTEROL [Concomitant]
     Indication: ASTHMA
     Dosage: 2 UNK, 2/D
     Route: 055
  10. NITROGLYCERIN [Concomitant]
     Indication: CHEST PAIN
     Dosage: UNK, UNKNOWN
  11. TRIAMTERENE AND HYDROCHLOROTHIAZIDE [Concomitant]
     Indication: HYPERTENSION
     Dosage: UNK D/F, DAILY (1/D)
     Route: 048

REACTIONS (6)
  - CHEST PAIN [None]
  - CORONARY ARTERY OCCLUSION [None]
  - DECREASED APPETITE [None]
  - MENISCUS LESION [None]
  - RENAL DISORDER [None]
  - WEIGHT INCREASED [None]
